FAERS Safety Report 14627292 (Version 5)
Quarter: 2018Q2

REPORT INFORMATION
  Report Type: Spontaneous
  Country: US (occurrence: US)
  Receive Date: 20180312
  Receipt Date: 20180622
  Transmission Date: 20180711
  Serious: Yes (Death, Hospitalization, Other)
  Sender: FDA-Public Use
  Company Number: US-VIFOR (INTERNATIONAL) INC.-VIT-2018-02234

PATIENT
  Sex: Male
  Weight: 69.01 kg

DRUGS (18)
  1. VELTASSA [Suspect]
     Active Substance: PATIROMER
     Route: 048
     Dates: start: 2017
  2. CLARITIN-D NOS [Concomitant]
     Active Substance: LORATADINE\PSEUDOEPHEDRINE SULFATE
  3. ASCORBIC ACID~~PYRIDOXINE HYDROCHLORIDE~~TOCOPHEROL~~FOLIC ACID~~CYANOCOBALAMIN~~RIBOFLAVIN~~CHOLINE [Concomitant]
  4. EPLERENONE. [Concomitant]
     Active Substance: EPLERENONE
  5. TAMSULOSIN HYDROCHLORIDE. [Concomitant]
     Active Substance: TAMSULOSIN HYDROCHLORIDE
  6. HYDROCHLOROTHIAZIDE~~POTASSIUM CHLORIDE [Concomitant]
  7. MUCINEX-DM [Concomitant]
  8. ALLOPURINOL. [Concomitant]
     Active Substance: ALLOPURINOL
  9. VELTASSA [Suspect]
     Active Substance: PATIROMER
     Route: 048
     Dates: start: 201803
  10. AMLODIPINE BESILATE [Concomitant]
     Active Substance: AMLODIPINE BESYLATE
  11. SIMVASTATIN. [Concomitant]
     Active Substance: SIMVASTATIN
  12. ALEVE [Concomitant]
     Active Substance: NAPROXEN SODIUM
  13. VELTASSA [Suspect]
     Active Substance: PATIROMER
     Indication: HYPERKALAEMIA
     Route: 048
     Dates: start: 20160216
  14. METOLAZONE. [Concomitant]
     Active Substance: METOLAZONE
  15. LEVOTHYROXINE SODIUM. [Concomitant]
     Active Substance: LEVOTHYROXINE SODIUM
  16. FUROSEMIDE. [Concomitant]
     Active Substance: FUROSEMIDE
  17. LOSARTAN. [Concomitant]
     Active Substance: LOSARTAN
  18. RELION/NOVOLIN [Concomitant]

REACTIONS (3)
  - Pneumonia [Recovered/Resolved]
  - Blood potassium increased [Unknown]
  - Death [Fatal]

NARRATIVE: CASE EVENT DATE: 2018
